FAERS Safety Report 8306777-7 (Version None)
Quarter: 2012Q2

REPORT INFORMATION
  Report Type: 
  Country: None (occurrence: None)
  Receive Date: 20120424
  Receipt Date: 20120419
  Transmission Date: 20120825
  Serious: No
  Sender: FDA-Public Use
  Company Number: US-PFIZER INC-2012097757

PATIENT
  Sex: Male
  Weight: 120.18 kg

DRUGS (7)
  1. KLONOPIN [Concomitant]
     Dosage: UNK
  2. VIAGRA [Suspect]
     Indication: ERECTILE DYSFUNCTION
     Dosage: 100 MG, AS NEEDED
     Route: 048
  3. METOPROLOL [Concomitant]
     Indication: HYPERTENSION
     Dosage: UNK
  4. HYDROCHLOROTHIAZIDE [Concomitant]
     Indication: HYPERTENSION
     Dosage: UNK
  5. VIAGRA [Suspect]
     Dosage: UNK
     Route: 048
     Dates: start: 20120201
  6. VIAGRA [Suspect]
     Dosage: 100 MG, AS NEEDED
     Route: 048
  7. HYDROCODONE [Concomitant]
     Dosage: 325 MG, UNK

REACTIONS (1)
  - DRUG INEFFECTIVE [None]
